FAERS Safety Report 17992226 (Version 1)
Quarter: 2020Q3

REPORT INFORMATION
  Report Type: Spontaneous
  Country: UY (occurrence: UY)
  Receive Date: 20200708
  Receipt Date: 20200708
  Transmission Date: 20201103
  Serious: Yes (Hospitalization, Other)
  Sender: FDA-Public Use
  Company Number: UY-ROCHE-2610377

PATIENT
  Age: 57 Year
  Sex: Female

DRUGS (8)
  1. KADCYLA [Suspect]
     Active Substance: ADO-TRASTUZUMAB EMTANSINE
     Indication: PRODUCT USED FOR UNKNOWN INDICATION
     Route: 065
     Dates: start: 20190826
  2. TRASTUZUMAB. [Suspect]
     Active Substance: TRASTUZUMAB
     Route: 065
     Dates: start: 2016, end: 20170705
  3. AMLODIPINE [Concomitant]
     Active Substance: AMLODIPINE BESYLATE
     Indication: HYPERTENSION
  4. DOCETAXEL. [Concomitant]
     Active Substance: DOCETAXEL
     Route: 065
     Dates: start: 20180730, end: 201904
  5. T4 [Concomitant]
     Active Substance: LEVOTHYROXINE
     Indication: HYPOTHYROIDISM
  6. GEMCITABINE. [Concomitant]
     Active Substance: GEMCITABINE
     Route: 065
     Dates: start: 20200323
  7. PERTUZUMAB. [Suspect]
     Active Substance: PERTUZUMAB
     Indication: PRODUCT USED FOR UNKNOWN INDICATION
     Route: 065
     Dates: start: 20181119
  8. TRASTUZUMAB. [Suspect]
     Active Substance: TRASTUZUMAB
     Indication: PRODUCT USED FOR UNKNOWN INDICATION
     Route: 065
     Dates: start: 20181119

REACTIONS (13)
  - Gait disturbance [Unknown]
  - Thrombocytopenia [Unknown]
  - Nausea [Unknown]
  - Muscle injury [Unknown]
  - Headache [Unknown]
  - Liver disorder [Unknown]
  - Nervous system disorder [Recovered/Resolved]
  - Vomiting [Unknown]
  - Liver injury [Unknown]
  - Vascular device infection [Unknown]
  - Dizziness [Unknown]
  - Fracture [Unknown]
  - Groin pain [Unknown]

NARRATIVE: CASE EVENT DATE: 20190108
